FAERS Safety Report 17246752 (Version 9)
Quarter: 2022Q2

REPORT INFORMATION
  Report Type: Spontaneous
  Country: US (occurrence: US)
  Receive Date: 20200108
  Receipt Date: 20220509
  Transmission Date: 20220720
  Serious: No
  Sender: FDA-Public Use
  Company Number: US-PFIZER INC-2020003868

PATIENT
  Age: 73 Year
  Sex: Female
  Weight: 73.94 kg

DRUGS (4)
  1. CELECOXIB [Suspect]
     Active Substance: CELECOXIB
     Indication: Arthritis
     Dosage: UNK, 2X/DAY
  2. CELECOXIB [Suspect]
     Active Substance: CELECOXIB
     Indication: Osteoarthritis
  3. CELECOXIB [Suspect]
     Active Substance: CELECOXIB
     Indication: Spinal osteoarthritis
  4. CELECOXIB [Suspect]
     Active Substance: CELECOXIB
     Indication: Arthritis
     Dosage: UNK, 2X/DAY

REACTIONS (4)
  - Drug ineffective [Unknown]
  - Mobility decreased [Unknown]
  - Drug intolerance [Unknown]
  - Therapeutic product effect decreased [Unknown]
